FAERS Safety Report 6718760-3 (Version None)
Quarter: 2010Q2

REPORT INFORMATION
  Report Type: 
  Country: None (occurrence: None)
  Receive Date: 20100511
  Receipt Date: 20100503
  Transmission Date: 20101027
  Serious: Yes (Other)
  Sender: FDA-Public Use
  Company Number: US-BIOGENIDEC-2009BI039190

PATIENT
  Sex: Male
  Weight: 100 kg

DRUGS (6)
  1. AVONEX [Suspect]
     Indication: MULTIPLE SCLEROSIS
     Route: 030
     Dates: start: 19960101
  2. AVONEX [Suspect]
     Route: 030
     Dates: start: 20040801
  3. MIDAZOLAM HCL [Concomitant]
     Route: 042
     Dates: start: 20090803, end: 20090803
  4. LIDOCAINE HCL TOPICAL SOLUTION [Concomitant]
     Indication: THERAPEUTIC PROCEDURE
     Route: 061
     Dates: start: 20090803, end: 20090803
  5. GABAPENTIN [Concomitant]
     Route: 048
  6. HYDROMORPHONE HCL [Concomitant]
     Route: 048

REACTIONS (10)
  - ANORECTAL ULCER [None]
  - DIARRHOEA [None]
  - HAEMORRHOID OPERATION [None]
  - LUNG ADENOCARCINOMA STAGE III [None]
  - NEPHROLITHIASIS [None]
  - PROSTATE CANCER [None]
  - RECTAL PERFORATION [None]
  - RESTLESS LEGS SYNDROME [None]
  - THROMBOPHLEBITIS [None]
  - VENA CAVA THROMBOSIS [None]
